FAERS Safety Report 7457554-0 (Version None)
Quarter: 2011Q2

REPORT INFORMATION
  Report Type: 
  Country: None (occurrence: None)
  Receive Date: 20110502
  Receipt Date: 20110502
  Transmission Date: 20111010
  Serious: Yes (Hospitalization)
  Sender: FDA-Public Use
  Company Number: None

PATIENT
  Age: 67 Year
  Sex: Female
  Weight: 72.1219 kg

DRUGS (2)
  1. 10 CC SYRINGE 10 CC HENRY SCHEIN [Suspect]
     Indication: ARTHRITIS
     Dosage: 80 MG ONCE INTRA-ARTICULAR
     Route: 014
     Dates: start: 20110421, end: 20110421
  2. DEPO-MEDROL [Suspect]
     Indication: MENISCUS LESION

REACTIONS (3)
  - ARTHRALGIA [None]
  - ANTIBIOTIC RESISTANT STAPHYLOCOCCUS TEST POSITIVE [None]
  - PURULENCE [None]
